FAERS Safety Report 8427725-5 (Version None)
Quarter: 2012Q2

REPORT INFORMATION
  Report Type: 
  Country: None (occurrence: None)
  Receive Date: 20120611
  Receipt Date: 20120601
  Transmission Date: 20120825
  Serious: Yes (Other)
  Sender: FDA-Public Use
  Company Number: US-ASTRAZENECA-2012SE36767

PATIENT
  Age: 49 Year
  Sex: Male
  Weight: 90.7 kg

DRUGS (4)
  1. ROPINIROLE [Interacting]
     Indication: SLEEP DISORDER
     Route: 065
  2. SEROQUEL [Suspect]
     Indication: SLEEP DISORDER
     Route: 048
  3. CHANTIX [Interacting]
     Indication: SMOKING CESSATION THERAPY
     Route: 048
     Dates: start: 20120425, end: 20120512
  4. CLONAZEPAM [Interacting]
     Indication: SLEEP DISORDER
     Route: 065

REACTIONS (8)
  - ABNORMAL BEHAVIOUR [None]
  - OFF LABEL USE [None]
  - FEELING ABNORMAL [None]
  - ANXIETY [None]
  - NIGHTMARE [None]
  - RESTLESSNESS [None]
  - FALL [None]
  - DRUG INTERACTION [None]
